FAERS Safety Report 14790892 (Version 6)
Quarter: 2020Q1

REPORT INFORMATION
  Report Type: Report from Study
  Country: CA (occurrence: CA)
  Receive Date: 20180423
  Receipt Date: 20200114
  Transmission Date: 20200409
  Serious: Yes (Hospitalization, Other)
  Sender: FDA-Public Use
  Company Number: CA-PFIZER INC-2018161353

PATIENT
  Age: 75 Year
  Sex: Male

DRUGS (10)
  1. TECTA [Suspect]
     Active Substance: PANTOPRAZOLE MAGNESIUM
     Dosage: 40 MG, UNK
     Route: 065
     Dates: start: 2007
  2. ENTYVIO [Suspect]
     Active Substance: VEDOLIZUMAB
     Indication: COLITIS ULCERATIVE
     Dosage: 300 MG, UNK
     Route: 042
     Dates: start: 20170404
  3. ENTYVIO [Suspect]
     Active Substance: VEDOLIZUMAB
     Dosage: 300 MILLIGRAM
     Route: 042
  4. ROSUVASTATIN. [Concomitant]
     Active Substance: ROSUVASTATIN
     Dosage: 40 MG, UNK
  5. JANUMET [Concomitant]
     Active Substance: METFORMIN HYDROCHLORIDE\SITAGLIPTIN PHOSPHATE
     Dosage: UNK UNK, BID
  6. ENTYVIO [Suspect]
     Active Substance: VEDOLIZUMAB
     Dosage: 300 MG, UNK
     Route: 042
  7. AMLODIPINE [Concomitant]
     Active Substance: AMLODIPINE BESYLATE
     Dosage: 10 MG, UNK
  8. PRAZOSIN. [Concomitant]
     Active Substance: PRAZOSIN
     Dosage: 2 MG, BID
  9. SALOFALK [Concomitant]
     Dosage: 4 DF, 2X/DAY(4 TABS BID)
     Route: 048
     Dates: start: 20100101
  10. SALOFALK [Concomitant]
     Dosage: UNK UNK, BID
     Route: 048
     Dates: start: 20100101

REACTIONS (4)
  - Malaise [Not Recovered/Not Resolved]
  - Faecal calprotectin increased [Unknown]
  - Rectal haemorrhage [Not Recovered/Not Resolved]
  - Diverticulitis [Unknown]

NARRATIVE: CASE EVENT DATE: 2018
